FAERS Safety Report 4889765-2 (Version None)
Quarter: 2006Q1

REPORT INFORMATION
  Report Type: 
  Country: None (occurrence: None)
  Receive Date: 20060124
  Receipt Date: 20050302
  Transmission Date: 20060701
  Serious: Yes (Hospitalization, Disabling, Other)
  Sender: FDA-Public Use
  Company Number: US-MERCK-0503USA00648

PATIENT
  Age: 54 Year
  Sex: Male
  Weight: 89 kg

DRUGS (2)
  1. VIOXX [Suspect]
     Indication: ARTHRALGIA
     Route: 048
     Dates: start: 20000612, end: 20000920
  2. VIOXX [Suspect]
     Route: 048
     Dates: start: 20000612, end: 20000920

REACTIONS (4)
  - CORONARY ARTERIAL STENT INSERTION [None]
  - HYPERTENSION [None]
  - MYOCARDIAL INFARCTION [None]
  - OBSTRUCTION [None]
